FAERS Safety Report 7726322-4 (Version None)
Quarter: 2011Q3

REPORT INFORMATION
  Report Type: 
  Country: None (occurrence: None)
  Receive Date: 20110902
  Receipt Date: 20110825
  Transmission Date: 20111222
  Serious: Yes (Other)
  Sender: FDA-Public Use
  Company Number: ZA-ROCHE-799425

PATIENT
  Sex: Male

DRUGS (1)
  1. PEGINTERFERON ALFA-2A [Suspect]
     Route: 065
     Dates: start: 20110317

REACTIONS (2)
  - RETINAL HAEMORRHAGE [None]
  - RETINAL EXUDATES [None]
